FAERS Safety Report 13183576 (Version 2)
Quarter: 2017Q1

REPORT INFORMATION
  Report Type: Report from Study
  Country: US (occurrence: US)
  Receive Date: 20170203
  Receipt Date: 20170228
  Transmission Date: 20170428
  Serious: No
  Sender: FDA-Public Use
  Company Number: PHEH2017US003147

PATIENT
  Age: 3 Year
  Sex: Male

DRUGS (5)
  1. ILARIS [Suspect]
     Active Substance: CANAKINUMAB
     Dosage: 17.5 MG, (EVERY 4 WEEKS)
     Route: 058
     Dates: start: 20170126
  2. ZANTAC [Concomitant]
     Active Substance: RANITIDINE HYDROCHLORIDE
     Indication: JUVENILE IDIOPATHIC ARTHRITIS
     Dosage: 2ML/30MG (BID) PRN
     Route: 048
  3. ILARIS [Suspect]
     Active Substance: CANAKINUMAB
     Indication: JUVENILE IDIOPATHIC ARTHRITIS
     Dosage: 65 MG, (EVERY 4 WEEKS)
     Route: 058
     Dates: start: 20151230, end: 20161109
  4. ILARIS [Suspect]
     Active Substance: CANAKINUMAB
     Dosage: 35 MG,(EVERY 4 WEEKS)
     Route: 058
     Dates: start: 20161229, end: 20170118
  5. INDOCIN [Concomitant]
     Active Substance: INDOMETHACIN
     Indication: JUVENILE IDIOPATHIC ARTHRITIS
     Dosage: 15MG/30ML, TID (PRN)
     Route: 048

REACTIONS (4)
  - Rhinorrhoea [Recovered/Resolved]
  - Musculoskeletal pain [Recovered/Resolved]
  - Pyrexia [Recovered/Resolved]
  - Headache [Recovered/Resolved]

NARRATIVE: CASE EVENT DATE: 20170122
